FAERS Safety Report 6321815-9 (Version None)
Quarter: 2009Q3

REPORT INFORMATION
  Report Type: 
  Country: None (occurrence: None)
  Receive Date: 20090811
  Receipt Date: 20090109
  Transmission Date: 20100115
  Serious: Yes (Other)
  Sender: FDA-Public Use
  Company Number: 2009BH000557

PATIENT
  Age: 59 Year
  Sex: Female

DRUGS (1)
  1. MIDAZOLAM HCL [Suspect]
     Indication: SEDATION
     Dosage: 4 MG;ONCE;IV
     Route: 042
     Dates: start: 20090108, end: 20090108

REACTIONS (3)
  - CONVULSION [None]
  - MUSCLE TWITCHING [None]
  - TACHYCARDIA [None]
